FAERS Safety Report 7079241-3 (Version None)
Quarter: 2010Q4

REPORT INFORMATION
  Report Type: 
  Country: None (occurrence: None)
  Receive Date: 20101102
  Receipt Date: 20101025
  Transmission Date: 20110411
  Serious: Yes (Hospitalization)
  Sender: FDA-Public Use
  Company Number: US-SANOFI-AVENTIS-2010SA056048

PATIENT
  Age: 82 Year
  Sex: Male
  Weight: 63.5 kg

DRUGS (2)
  1. LANTUS [Suspect]
     Dosage: 14 UNITS IF HIS BLOOD SUGAR IS BELOW 140 AND 15 UNITS IF IT IS ABOVE 140
     Route: 058
  2. OPTICLICK [Suspect]
     Dates: start: 20070501, end: 20100610

REACTIONS (4)
  - ARTHRALGIA [None]
  - BLOOD SODIUM DECREASED [None]
  - DECREASED APPETITE [None]
  - WEIGHT DECREASED [None]
